FAERS Safety Report 12790471 (Version 1)
Quarter: 2016Q3

REPORT INFORMATION
  Report Type: Spontaneous
  Country: CN (occurrence: CN)
  Receive Date: 20160929
  Receipt Date: 20160929
  Transmission Date: 20161109
  Serious: Yes (Other)
  Sender: FDA-Public Use
  Company Number: CN-BAXTER-2016BAX048662

PATIENT
  Age: 25 Year
  Sex: Female
  Weight: 51 kg

DRUGS (2)
  1. 10% GLUCOSE  INJECTION [Suspect]
     Active Substance: DEXTROSE
     Indication: APPENDICITIS
     Dosage: 200 ML OUT OF 500 ML
     Route: 041
     Dates: start: 20151223, end: 20151223
  2. 10% GLUCOSE  INJECTION [Suspect]
     Active Substance: DEXTROSE
     Indication: OFF LABEL USE

REACTIONS (2)
  - Chest discomfort [Recovering/Resolving]
  - Discomfort [Recovering/Resolving]

NARRATIVE: CASE EVENT DATE: 20151223
